FAERS Safety Report 7374520-4 (Version None)
Quarter: 2011Q1

REPORT INFORMATION
  Report Type: 
  Country: None (occurrence: None)
  Receive Date: 20110325
  Receipt Date: 20100222
  Transmission Date: 20110831
  Serious: No
  Sender: FDA-Public Use
  Company Number: US-MYLANLABS-2010S1002064

PATIENT
  Age: 59 Year
  Sex: Male

DRUGS (4)
  1. FENTANYL-100 [Suspect]
     Dosage: Q72HRS.
     Route: 062
     Dates: start: 20100103, end: 20100130
  2. PERCOCET [Concomitant]
  3. XANAX [Concomitant]
  4. FENTANYL-100 [Suspect]
     Indication: PAIN
     Dosage: Q72HRS.
     Route: 062
     Dates: start: 20090101, end: 20100102

REACTIONS (4)
  - DRUG EFFECT INCREASED [None]
  - VISUAL IMPAIRMENT [None]
  - DIZZINESS [None]
  - DYSPNOEA [None]
